FAERS Safety Report 25709401 (Version 1)
Quarter: 2025Q3

REPORT INFORMATION
  Report Type: Spontaneous
  Country: CA (occurrence: CA)
  Receive Date: 20250821
  Receipt Date: 20250821
  Transmission Date: 20251021
  Serious: Yes (Death, Life-Threatening, Hospitalization, Disabling, Other)
  Sender: BRISTOL-MYERS SQUIBB COMPANY
  Company Number: CA-BRISTOL-MYERS SQUIBB COMPANY-2025-113371

PATIENT
  Age: 44 Year
  Sex: Female
  Weight: 68 kg

DRUGS (218)
  1. TRIAMCINOLONE ACETONIDE [Suspect]
     Active Substance: TRIAMCINOLONE ACETONIDE
     Indication: Rheumatoid arthritis
     Route: 014
  2. ACETAMINOPHEN [Concomitant]
     Active Substance: ACETAMINOPHEN
     Indication: Product used for unknown indication
  3. ACETAMINOPHEN [Concomitant]
     Active Substance: ACETAMINOPHEN
  4. ALENDRONATE SODIUM [Concomitant]
     Active Substance: ALENDRONATE SODIUM
     Indication: Rheumatoid arthritis
  5. ALENDRONATE SODIUM [Concomitant]
     Active Substance: ALENDRONATE SODIUM
     Route: 048
  6. ALENDRONATE SODIUM [Concomitant]
     Active Substance: ALENDRONATE SODIUM
  7. ALENDRONATE SODIUM [Concomitant]
     Active Substance: ALENDRONATE SODIUM
     Route: 016
  8. ALENDRONATE SODIUM [Concomitant]
     Active Substance: ALENDRONATE SODIUM
  9. APREPITANT [Concomitant]
     Active Substance: APREPITANT
     Indication: Product used for unknown indication
     Route: 042
  10. CALCIUM CARBONATE [Concomitant]
     Active Substance: CALCIUM CARBONATE
     Indication: Product used for unknown indication
  11. CETIRIZINE [Concomitant]
     Active Substance: CETIRIZINE HYDROCHLORIDE
     Indication: Product used for unknown indication
  12. CETIRIZINE [Concomitant]
     Active Substance: CETIRIZINE HYDROCHLORIDE
  13. CETIRIZINE [Concomitant]
     Active Substance: CETIRIZINE HYDROCHLORIDE
     Route: 048
  14. CETIRIZINE [Concomitant]
     Active Substance: CETIRIZINE HYDROCHLORIDE
  15. CETIRIZINE [Concomitant]
     Active Substance: CETIRIZINE HYDROCHLORIDE
  16. CETIRIZINE [Concomitant]
     Active Substance: CETIRIZINE HYDROCHLORIDE
     Route: 048
  17. CETIRIZINE [Concomitant]
     Active Substance: CETIRIZINE HYDROCHLORIDE
     Route: 048
  18. CETIRIZINE [Concomitant]
     Active Substance: CETIRIZINE HYDROCHLORIDE
  19. DESOXIMETASONE [Concomitant]
     Active Substance: DESOXIMETASONE
     Indication: Product used for unknown indication
     Route: 016
  20. DESOXIMETASONE [Concomitant]
     Active Substance: DESOXIMETASONE
     Route: 003
  21. DESOXIMETASONE [Concomitant]
     Active Substance: DESOXIMETASONE
     Route: 048
  22. DESOXIMETASONE [Concomitant]
     Active Substance: DESOXIMETASONE
     Route: 050
  23. DESOXIMETASONE [Concomitant]
     Active Substance: DESOXIMETASONE
     Route: 048
  24. DESOXIMETASONE [Concomitant]
     Active Substance: DESOXIMETASONE
  25. DESOXIMETASONE [Concomitant]
     Active Substance: DESOXIMETASONE
     Route: 061
  26. DESOXIMETASONE [Concomitant]
     Active Substance: DESOXIMETASONE
     Route: 058
  27. DESOXIMETASONE [Concomitant]
     Active Substance: DESOXIMETASONE
     Route: 003
  28. DESOXIMETASONE [Concomitant]
     Active Substance: DESOXIMETASONE
     Route: 003
  29. DESOXIMETASONE [Concomitant]
     Active Substance: DESOXIMETASONE
  30. DESOXIMETASONE [Concomitant]
     Active Substance: DESOXIMETASONE
     Route: 048
  31. DESOXIMETASONE [Concomitant]
     Active Substance: DESOXIMETASONE
     Route: 061
  32. DESOXIMETASONE [Concomitant]
     Active Substance: DESOXIMETASONE
     Route: 042
  33. DESOXIMETASONE [Concomitant]
     Active Substance: DESOXIMETASONE
     Route: 048
  34. DESOXIMETASONE [Concomitant]
     Active Substance: DESOXIMETASONE
  35. DESOXIMETASONE [Concomitant]
     Active Substance: DESOXIMETASONE
     Route: 048
  36. DESOXIMETASONE [Concomitant]
     Active Substance: DESOXIMETASONE
     Route: 048
  37. DESOXIMETASONE [Concomitant]
     Active Substance: DESOXIMETASONE
     Route: 048
  38. DICLOFENAC [Concomitant]
     Active Substance: DICLOFENAC
     Indication: Product used for unknown indication
     Route: 047
  39. DICLOFENAC [Concomitant]
     Active Substance: DICLOFENAC
  40. DICLOFENAC POTASSIUM [Concomitant]
     Active Substance: DICLOFENAC POTASSIUM
     Indication: Product used for unknown indication
  41. DICLOFENAC POTASSIUM [Concomitant]
     Active Substance: DICLOFENAC POTASSIUM
     Route: 048
  42. DILTIAZEM [Concomitant]
     Active Substance: DILTIAZEM
     Indication: Product used for unknown indication
  43. DOXYCYCLINE [Concomitant]
     Active Substance: DOXYCYCLINE
     Indication: Product used for unknown indication
  44. DOXYCYCLINE HYCLATE [Concomitant]
     Active Substance: DOXYCYCLINE HYCLATE
     Indication: Product used for unknown indication
  45. ERELZI [Concomitant]
     Active Substance: ETANERCEPT-SZZS
     Indication: Rheumatoid arthritis
     Route: 058
  46. ERELZI [Concomitant]
     Active Substance: ETANERCEPT-SZZS
  47. ERELZI [Concomitant]
     Active Substance: ETANERCEPT-SZZS
     Route: 058
  48. FOLIC ACID [Concomitant]
     Active Substance: FOLIC ACID
     Indication: Rheumatoid arthritis
  49. FOLIC ACID [Concomitant]
     Active Substance: FOLIC ACID
  50. FOLIC ACID [Concomitant]
     Active Substance: FOLIC ACID
  51. FOLIC ACID [Concomitant]
     Active Substance: FOLIC ACID
  52. FOLIC ACID [Concomitant]
     Active Substance: FOLIC ACID
  53. FOLIC ACID [Concomitant]
     Active Substance: FOLIC ACID
  54. FOLIC ACID [Concomitant]
     Active Substance: FOLIC ACID
     Route: 048
  55. FOLIC ACID [Concomitant]
     Active Substance: FOLIC ACID
  56. FOLIC ACID [Concomitant]
     Active Substance: FOLIC ACID
     Route: 048
  57. FOLIC ACID [Concomitant]
     Active Substance: FOLIC ACID
  58. FOLIC ACID [Concomitant]
     Active Substance: FOLIC ACID
  59. FOLIC ACID [Concomitant]
     Active Substance: FOLIC ACID
     Route: 048
  60. FOLIC ACID [Concomitant]
     Active Substance: FOLIC ACID
  61. FOLIC ACID [Concomitant]
     Active Substance: FOLIC ACID
     Route: 048
  62. FOLIC ACID [Concomitant]
     Active Substance: FOLIC ACID
     Route: 048
  63. FOLIC ACID [Concomitant]
     Active Substance: FOLIC ACID
     Route: 048
  64. FOLIC ACID [Concomitant]
     Active Substance: FOLIC ACID
  65. FOLIC ACID [Concomitant]
     Active Substance: FOLIC ACID
  66. FOLIC ACID [Concomitant]
     Active Substance: FOLIC ACID
     Route: 058
  67. FOLIC ACID [Concomitant]
     Active Substance: FOLIC ACID
  68. FOLIC ACID [Concomitant]
     Active Substance: FOLIC ACID
  69. FOLIC ACID [Concomitant]
     Active Substance: FOLIC ACID
  70. FOLIC ACID [Concomitant]
     Active Substance: FOLIC ACID
  71. FOLIC ACID [Concomitant]
     Active Substance: FOLIC ACID
  72. FOLIC ACID [Concomitant]
     Active Substance: FOLIC ACID
     Route: 016
  73. FOLIC ACID [Concomitant]
     Active Substance: FOLIC ACID
  74. HYDROXYCHLOROQUINE [Concomitant]
     Active Substance: HYDROXYCHLOROQUINE
     Indication: Product used for unknown indication
  75. HYDROXYCHLOROQUINE [Concomitant]
     Active Substance: HYDROXYCHLOROQUINE
  76. HYDROXYCHLOROQUINE [Concomitant]
     Active Substance: HYDROXYCHLOROQUINE
     Route: 048
  77. HYDROXYCHLOROQUINE [Concomitant]
     Active Substance: HYDROXYCHLOROQUINE
     Route: 058
  78. HYDROXYCHLOROQUINE [Concomitant]
     Active Substance: HYDROXYCHLOROQUINE
     Route: 048
  79. HYDROXYCHLOROQUINE [Concomitant]
     Active Substance: HYDROXYCHLOROQUINE
  80. HYDROXYCHLOROQUINE [Concomitant]
     Active Substance: HYDROXYCHLOROQUINE
  81. HYDROXYCHLOROQUINE [Concomitant]
     Active Substance: HYDROXYCHLOROQUINE
     Route: 048
  82. HYDROXYCHLOROQUINE [Concomitant]
     Active Substance: HYDROXYCHLOROQUINE
  83. HYDROXYCHLOROQUINE [Concomitant]
     Active Substance: HYDROXYCHLOROQUINE
  84. HYDROXYCHLOROQUINE [Concomitant]
     Active Substance: HYDROXYCHLOROQUINE
  85. HYDROXYCHLOROQUINE [Concomitant]
     Active Substance: HYDROXYCHLOROQUINE
     Route: 048
  86. HYDROXYCHLOROQUINE [Concomitant]
     Active Substance: HYDROXYCHLOROQUINE
     Route: 048
  87. HYDROXYCHLOROQUINE [Concomitant]
     Active Substance: HYDROXYCHLOROQUINE
  88. HYDROXYCHLOROQUINE [Concomitant]
     Active Substance: HYDROXYCHLOROQUINE
     Route: 005
  89. HYDROXYCHLOROQUINE [Concomitant]
     Active Substance: HYDROXYCHLOROQUINE
  90. HYDROXYCHLOROQUINE [Concomitant]
     Active Substance: HYDROXYCHLOROQUINE
     Route: 048
  91. HYDROXYCHLOROQUINE SULFATE [Concomitant]
     Active Substance: HYDROXYCHLOROQUINE SULFATE
     Indication: Product used for unknown indication
     Route: 048
  92. HYDROXYCHLOROQUINE SULFATE [Concomitant]
     Active Substance: HYDROXYCHLOROQUINE SULFATE
     Route: 048
  93. HYDROXYCHLOROQUINE SULFATE [Concomitant]
     Active Substance: HYDROXYCHLOROQUINE SULFATE
     Route: 066
  94. HYDROXYCHLOROQUINE SULFATE [Concomitant]
     Active Substance: HYDROXYCHLOROQUINE SULFATE
     Route: 048
  95. HYDROXYCHLOROQUINE SULFATE [Concomitant]
     Active Substance: HYDROXYCHLOROQUINE SULFATE
  96. HYDROXYCHLOROQUINE SULFATE [Concomitant]
     Active Substance: HYDROXYCHLOROQUINE SULFATE
     Route: 048
  97. HYDROXYCHLOROQUINE SULFATE [Concomitant]
     Active Substance: HYDROXYCHLOROQUINE SULFATE
     Route: 048
  98. HYDROXYCHLOROQUINE SULFATE [Concomitant]
     Active Substance: HYDROXYCHLOROQUINE SULFATE
  99. HYDROXYCHLOROQUINE SULFATE [Concomitant]
     Active Substance: HYDROXYCHLOROQUINE SULFATE
  100. HYDROXYCHLOROQUINE SULFATE [Concomitant]
     Active Substance: HYDROXYCHLOROQUINE SULFATE
     Route: 048
  101. HYDROXYCHLOROQUINE SULFATE [Concomitant]
     Active Substance: HYDROXYCHLOROQUINE SULFATE
     Route: 058
  102. HYDROXYCHLOROQUINE SULFATE [Concomitant]
     Active Substance: HYDROXYCHLOROQUINE SULFATE
  103. HYDROXYCHLOROQUINE SULFATE [Concomitant]
     Active Substance: HYDROXYCHLOROQUINE SULFATE
     Route: 048
  104. HYDROXYCHLOROQUINE SULFATE [Concomitant]
     Active Substance: HYDROXYCHLOROQUINE SULFATE
     Route: 058
  105. HYDROXYCHLOROQUINE SULFATE [Concomitant]
     Active Substance: HYDROXYCHLOROQUINE SULFATE
     Route: 058
  106. HYDROXYCHLOROQUINE SULFATE [Concomitant]
     Active Substance: HYDROXYCHLOROQUINE SULFATE
     Route: 058
  107. HYDROXYCHLOROQUINE SULFATE [Concomitant]
     Active Substance: HYDROXYCHLOROQUINE SULFATE
     Route: 016
  108. HYRIMOZ [Concomitant]
     Active Substance: ADALIMUMAB-ADAZ
     Indication: Rheumatoid arthritis
     Route: 058
  109. HYRIMOZ [Concomitant]
     Active Substance: ADALIMUMAB-ADAZ
     Indication: Psoriatic arthropathy
     Route: 042
  110. HYRIMOZ [Concomitant]
     Active Substance: ADALIMUMAB-ADAZ
     Route: 058
  111. INFLIXIMAB [Concomitant]
     Active Substance: INFLIXIMAB
     Indication: Rheumatoid arthritis
     Route: 042
  112. INFLIXIMAB [Concomitant]
     Active Substance: INFLIXIMAB
     Route: 042
  113. INFLIXIMAB [Concomitant]
     Active Substance: INFLIXIMAB
  114. INFLIXIMAB [Concomitant]
     Active Substance: INFLIXIMAB
  115. METHOTREXATE [Concomitant]
     Active Substance: METHOTREXATE
     Indication: Rheumatoid arthritis
     Route: 042
  116. METHOTREXATE [Concomitant]
     Active Substance: METHOTREXATE
     Dosage: METHOTREXATE INJECTION, USP
  117. METHOTREXATE [Concomitant]
     Active Substance: METHOTREXATE
  118. METHOTREXATE [Concomitant]
     Active Substance: METHOTREXATE
     Dosage: METHOTREXATE INJECTION, USP
     Route: 058
  119. METHOTREXATE [Concomitant]
     Active Substance: METHOTREXATE
     Route: 013
  120. METHOTREXATE [Concomitant]
     Active Substance: METHOTREXATE
  121. METHOTREXATE [Concomitant]
     Active Substance: METHOTREXATE
     Dosage: METHOTREXATE INJECTION, USP
     Route: 013
  122. METHOTREXATE [Concomitant]
     Active Substance: METHOTREXATE
     Dosage: METHOTREXATE INJECTION, USP
     Route: 058
  123. METHOTREXATE [Concomitant]
     Active Substance: METHOTREXATE
     Dosage: METHOTREXATE INJECTION, USP
     Route: 013
  124. METHOTREXATE [Concomitant]
     Active Substance: METHOTREXATE
     Dosage: METHOTREXATE INJECTION, USP
     Route: 058
  125. METHOTREXATE [Concomitant]
     Active Substance: METHOTREXATE
     Dosage: METHOTREXATE INJECTION, USP
     Route: 058
  126. METHOTREXATE [Concomitant]
     Active Substance: METHOTREXATE
     Dosage: METHOTREXATE INJECTION, USP
     Route: 013
  127. METHOTREXATE [Concomitant]
     Active Substance: METHOTREXATE
     Route: 013
  128. METHOTREXATE [Concomitant]
     Active Substance: METHOTREXATE
     Dosage: METHOTREXATE INJECTION, USP
  129. METHOTREXATE [Concomitant]
     Active Substance: METHOTREXATE
  130. METHOTREXATE [Concomitant]
     Active Substance: METHOTREXATE
     Dosage: METHOTREXATE INJECTION, USP
     Route: 013
  131. METHOTREXATE [Concomitant]
     Active Substance: METHOTREXATE
     Dosage: METHOTREXATE INJECTION, USP
     Route: 013
  132. METHOTREXATE [Concomitant]
     Active Substance: METHOTREXATE
     Route: 016
  133. METHOTREXATE [Concomitant]
     Active Substance: METHOTREXATE
     Route: 048
  134. METHOTREXATE [Concomitant]
     Active Substance: METHOTREXATE
     Route: 048
  135. METHOTREXATE [Concomitant]
     Active Substance: METHOTREXATE
     Dosage: METHOTREXATE INJECTION, USP
     Route: 048
  136. METHOTREXATE [Concomitant]
     Active Substance: METHOTREXATE
     Dosage: METHOTREXATE INJECTION, USP
     Route: 048
  137. METHOTREXATE [Concomitant]
     Active Substance: METHOTREXATE
     Route: 048
  138. METHOTREXATE [Concomitant]
     Active Substance: METHOTREXATE
     Dosage: METHOTREXATE INJECTION, USP
     Route: 048
  139. METHOTREXATE [Concomitant]
     Active Substance: METHOTREXATE
     Route: 048
  140. METHOTREXATE [Concomitant]
     Active Substance: METHOTREXATE
     Route: 048
  141. METHOTREXATE [Concomitant]
     Active Substance: METHOTREXATE
     Route: 048
  142. METHOTREXATE [Concomitant]
     Active Substance: METHOTREXATE
     Route: 048
  143. METHOTREXATE [Concomitant]
     Active Substance: METHOTREXATE
     Route: 048
  144. METHOTREXATE [Concomitant]
     Active Substance: METHOTREXATE
     Route: 048
  145. METHOTREXATE [Concomitant]
     Active Substance: METHOTREXATE
     Route: 048
  146. METHOTREXATE [Concomitant]
     Active Substance: METHOTREXATE
     Route: 048
  147. METHOTREXATE [Concomitant]
     Active Substance: METHOTREXATE
     Route: 048
  148. METHOTREXATE [Concomitant]
     Active Substance: METHOTREXATE
     Route: 048
  149. METHOTREXATE [Concomitant]
     Active Substance: METHOTREXATE
     Route: 048
  150. METHOTREXATE [Concomitant]
     Active Substance: METHOTREXATE
  151. METHOTREXATE [Concomitant]
     Active Substance: METHOTREXATE
  152. METHOTREXATE [Concomitant]
     Active Substance: METHOTREXATE
  153. METHOTREXATE [Concomitant]
     Active Substance: METHOTREXATE
     Route: 013
  154. METHOTREXATE [Concomitant]
     Active Substance: METHOTREXATE
     Route: 058
  155. METHOTREXATE [Concomitant]
     Active Substance: METHOTREXATE
     Route: 058
  156. METHOTREXATE [Concomitant]
     Active Substance: METHOTREXATE
     Route: 058
  157. MINOCYCLINE HYDROCHLORIDE [Concomitant]
     Active Substance: MINOCYCLINE HYDROCHLORIDE
     Indication: Product used for unknown indication
  158. MINOCYCLINE HYDROCHLORIDE [Concomitant]
     Active Substance: MINOCYCLINE HYDROCHLORIDE
  159. OXYCODONE [Concomitant]
     Active Substance: OXYCODONE
     Indication: Product used for unknown indication
  160. OXYCODONE HYDROCHLORIDE [Concomitant]
     Active Substance: OXYCODONE HYDROCHLORIDE
     Indication: Product used for unknown indication
  161. PREDNISOLONE [Concomitant]
     Active Substance: PREDNISOLONE
     Indication: Product used for unknown indication
  162. PREDNISONE [Concomitant]
     Active Substance: PREDNISONE
     Indication: Product used for unknown indication
     Route: 048
  163. PREDNISONE [Concomitant]
     Active Substance: PREDNISONE
  164. PREDNISONE [Concomitant]
     Active Substance: PREDNISONE
  165. PREDNISONE [Concomitant]
     Active Substance: PREDNISONE
     Route: 048
  166. PREDNISONE [Concomitant]
     Active Substance: PREDNISONE
  167. PREDNISONE [Concomitant]
     Active Substance: PREDNISONE
     Route: 048
  168. PREDNISONE [Concomitant]
     Active Substance: PREDNISONE
  169. PREDNISONE [Concomitant]
     Active Substance: PREDNISONE
  170. PREDNISONE [Concomitant]
     Active Substance: PREDNISONE
     Route: 048
  171. PREDNISONE [Concomitant]
     Active Substance: PREDNISONE
     Route: 048
  172. PREDNISONE [Concomitant]
     Active Substance: PREDNISONE
     Route: 048
  173. QUETIAPINE FUMARATE [Concomitant]
     Active Substance: QUETIAPINE FUMARATE
     Indication: Rheumatoid arthritis
     Route: 048
  174. QUETIAPINE FUMARATE [Concomitant]
     Active Substance: QUETIAPINE FUMARATE
     Route: 003
  175. RAMIPRIL [Concomitant]
     Active Substance: RAMIPRIL
     Indication: Product used for unknown indication
  176. RITUXIMAB [Concomitant]
     Active Substance: RITUXIMAB
     Indication: Rheumatoid arthritis
     Route: 042
  177. RITUXIMAB [Concomitant]
     Active Substance: RITUXIMAB
     Route: 058
  178. RITUXIMAB [Concomitant]
     Active Substance: RITUXIMAB
  179. RITUXIMAB [Concomitant]
     Active Substance: RITUXIMAB
     Route: 058
  180. RITUXIMAB [Concomitant]
     Active Substance: RITUXIMAB
     Route: 042
  181. RITUXIMAB [Concomitant]
     Active Substance: RITUXIMAB
     Route: 041
  182. RITUXIMAB [Concomitant]
     Active Substance: RITUXIMAB
     Route: 042
  183. RITUXIMAB [Concomitant]
     Active Substance: RITUXIMAB
  184. APREMILAST [Concomitant]
     Active Substance: APREMILAST
     Indication: Product used for unknown indication
  185. CELECOXIB [Concomitant]
     Active Substance: CELECOXIB
     Indication: Arthritis
  186. CELECOXIB [Concomitant]
     Active Substance: CELECOXIB
  187. CELECOXIB [Concomitant]
     Active Substance: CELECOXIB
  188. DICLOFENAC SODIUM [Concomitant]
     Active Substance: DICLOFENAC SODIUM
     Indication: Rheumatoid arthritis
     Route: 047
  189. DICLOFENAC SODIUM [Concomitant]
     Active Substance: DICLOFENAC SODIUM
     Indication: Osteoarthritis
  190. DICLOFENAC SODIUM [Concomitant]
     Active Substance: DICLOFENAC SODIUM
     Indication: Inflammation
     Route: 050
  191. DICLOFENAC SODIUM [Concomitant]
     Active Substance: DICLOFENAC SODIUM
  192. DICLOFENAC SODIUM [Concomitant]
     Active Substance: DICLOFENAC SODIUM
     Route: 048
  193. DICLOFENAC SODIUM [Concomitant]
     Active Substance: DICLOFENAC SODIUM
  194. DILTIAZEM HYDROCHLORIDE [Concomitant]
     Active Substance: DILTIAZEM HYDROCHLORIDE
     Indication: Product used for unknown indication
     Route: 042
  195. DILTIAZEM HYDROCHLORIDE [Concomitant]
     Active Substance: DILTIAZEM HYDROCHLORIDE
  196. HYDROCORTISONE [Concomitant]
     Active Substance: HYDROCORTISONE
     Indication: Product used for unknown indication
  197. HYDROCORTISONE [Concomitant]
     Active Substance: HYDROCORTISONE
     Route: 003
  198. HYDROCORTISONE [Concomitant]
     Active Substance: HYDROCORTISONE
  199. HYDROCORTISONE [Concomitant]
     Active Substance: HYDROCORTISONE
     Route: 058
  200. HYDROCORTISONE [Concomitant]
     Active Substance: HYDROCORTISONE
     Route: 048
  201. HYDROCORTISONE [Concomitant]
     Active Substance: HYDROCORTISONE
     Route: 061
  202. HYDROCORTISONE [Concomitant]
     Active Substance: HYDROCORTISONE
     Route: 048
  203. LEFLUNOMIDE [Concomitant]
     Active Substance: LEFLUNOMIDE
     Indication: Rheumatoid arthritis
     Route: 048
  204. LEFLUNOMIDE [Concomitant]
     Active Substance: LEFLUNOMIDE
     Route: 048
  205. LEFLUNOMIDE [Concomitant]
     Active Substance: LEFLUNOMIDE
  206. LEFLUNOMIDE [Concomitant]
     Active Substance: LEFLUNOMIDE
     Route: 048
  207. MOXIFLOXACIN HYDROCHLORIDE [Concomitant]
     Active Substance: MOXIFLOXACIN HYDROCHLORIDE
     Indication: Product used for unknown indication
     Route: 058
  208. MYCOPHENOLATE MOFETIL [Concomitant]
     Active Substance: MYCOPHENOLATE MOFETIL
     Indication: Product used for unknown indication
  209. PANTOPRAZOLE SODIUM [Concomitant]
     Active Substance: PANTOPRAZOLE SODIUM
     Indication: Product used for unknown indication
  210. PANTOPRAZOLE SODIUM [Concomitant]
     Active Substance: PANTOPRAZOLE SODIUM
     Route: 016
  211. PREGABALIN [Concomitant]
     Active Substance: PREGABALIN
     Indication: Product used for unknown indication
  212. TRAMADOL HYDROCHLORIDE [Concomitant]
     Active Substance: TRAMADOL HYDROCHLORIDE
     Indication: Product used for unknown indication
  213. VITAMIN C [Concomitant]
     Active Substance: ASCORBIC ACID
     Indication: Product used for unknown indication
  214. VITAMIN C [Concomitant]
     Active Substance: ASCORBIC ACID
  215. METHOTREXATE [Concomitant]
     Active Substance: METHOTREXATE
     Indication: Rheumatoid arthritis
     Route: 048
  216. METHOTREXATE [Concomitant]
     Active Substance: METHOTREXATE
     Route: 058
  217. METHOTREXATE [Concomitant]
     Active Substance: METHOTREXATE
     Route: 048
  218. METHOTREXATE [Concomitant]
     Active Substance: METHOTREXATE
     Route: 048

REACTIONS (1)
  - Glossodynia [Fatal]
